FAERS Safety Report 6013545-8 (Version None)
Quarter: 2008Q4

REPORT INFORMATION
  Report Type: 
  Country: None (occurrence: None)
  Receive Date: 20081219
  Receipt Date: 20081217
  Transmission Date: 20090506
  Serious: Yes (Death, Hospitalization)
  Sender: FDA-Public Use
  Company Number: PHHY2008SE23264

PATIENT
  Sex: Male

DRUGS (5)
  1. LEPONEX [Suspect]
     Indication: SCHIZOPHRENIA
     Dosage: 300 MG DAILY
     Dates: start: 19880101
  2. RISPERDAL [Concomitant]
     Dosage: 2 MG 1X1
  3. ATENOLOL [Concomitant]
     Dosage: 50 MG, QD
  4. ACETYLCYSTEINE [Concomitant]
     Dosage: UNK
  5. AKINETON [Concomitant]

REACTIONS (10)
  - BLOOD CREATININE INCREASED [None]
  - DIALYSIS [None]
  - HYPERKALAEMIA [None]
  - MALAISE [None]
  - MYOGLOBIN BLOOD INCREASED [None]
  - RESPIRATORY ARREST [None]
  - RHABDOMYOLYSIS [None]
  - SEPSIS [None]
  - SHOCK [None]
  - SUDDEN DEATH [None]
